FAERS Safety Report 11888707 (Version 1)
Quarter: 2016Q1

REPORT INFORMATION
  Report Type: Spontaneous
  Country: US (occurrence: US)
  Receive Date: 20160105
  Receipt Date: 20160105
  Transmission Date: 20160526
  Serious: Yes (Hospitalization)
  Sender: FDA-Public Use
  Company Number: US-US WORLDMEDS, LLC-USW201512-000366

PATIENT
  Sex: Female
  Weight: 61.23 kg

DRUGS (1)
  1. NADOLOL. [Suspect]
     Active Substance: NADOLOL
     Indication: HYPERTENSION

REACTIONS (3)
  - Drug ineffective [Unknown]
  - Myocardial infarction [Recovered/Resolved]
  - Choking [Recovered/Resolved]
